FAERS Safety Report 15249284 (Version 1)
Quarter: 2018Q3

REPORT INFORMATION
  Report Type: Spontaneous
  Country: US (occurrence: US)
  Receive Date: 20180807
  Receipt Date: 20180807
  Transmission Date: 20181010
  Serious: No
  Sender: FDA-Public Use
  Company Number: US-PERRIGO-17US027296

PATIENT
  Age: 36 Year
  Sex: Male
  Weight: 145.13 kg

DRUGS (1)
  1. LORATADINE. [Suspect]
     Active Substance: LORATADINE
     Indication: SNEEZING
     Dosage: 30 MG, SINGLE
     Route: 048
     Dates: start: 20171004, end: 20171004

REACTIONS (4)
  - Anxiety [Not Recovered/Not Resolved]
  - Overdose [Recovered/Resolved]
  - Nightmare [Recovered/Resolved]
  - Palpitations [Not Recovered/Not Resolved]

NARRATIVE: CASE EVENT DATE: 20171004
